FAERS Safety Report 19273339 (Version 1)
Quarter: 2021Q2

REPORT INFORMATION
  Report Type: Spontaneous
  Country: US (occurrence: US)
  Receive Date: 20210518
  Receipt Date: 20210518
  Transmission Date: 20210717
  Serious: No
  Sender: FDA-Public Use
  Company Number: None

PATIENT
  Age: 73 Year
  Sex: Male

DRUGS (3)
  1. LEVETIRACETAM. [Suspect]
     Active Substance: LEVETIRACETAM
  2. REMDESIVIR (REMDESIVIR 100MG/VIAL INJ) [Suspect]
     Active Substance: REMDESIVIR
     Route: 048
     Dates: start: 20201117
  3. REMDESIVIR (REMDESIVIR 100MG/VIAL INJ) [Suspect]
     Active Substance: REMDESIVIR
     Route: 042
     Dates: start: 20201124, end: 20201126

REACTIONS (1)
  - Thrombocytopenia [None]

NARRATIVE: CASE EVENT DATE: 20201130
